FAERS Safety Report 10160534 (Version 2)
Quarter: 2014Q2

REPORT INFORMATION
  Report Type: Spontaneous
  Country: US (occurrence: US)
  Receive Date: 20140508
  Receipt Date: 20140513
  Transmission Date: 20141212
  Serious: No
  Sender: FDA-Public Use
  Company Number: US-009507513-1404USA005941

PATIENT
  Sex: Female

DRUGS (2)
  1. MIRALAX [Suspect]
     Indication: PRODUCT USED FOR UNKNOWN INDICATION
     Dosage: UNK, QPM
     Route: 048
     Dates: start: 2012
  2. MIRALAX [Suspect]
     Dosage: UNK, QPM
     Route: 048
     Dates: start: 2012

REACTIONS (4)
  - Blood cholesterol increased [Unknown]
  - Incorrect drug administration duration [Unknown]
  - Drug prescribing error [Unknown]
  - Off label use [Unknown]
